FAERS Safety Report 4311098-3 (Version None)
Quarter: 2004Q1

REPORT INFORMATION
  Report Type: 
  Country: None (occurrence: None)
  Receive Date: 20040302
  Receipt Date: 20040223
  Transmission Date: 20041129
  Serious: Yes (Other)
  Sender: FDA-Public Use
  Company Number: US-JNJFOC-20040205675

PATIENT
  Sex: Female

DRUGS (1)
  1. REMICADE [Suspect]
     Indication: RHEUMATOID ARTHRITIS
     Dosage: ^INTRAVENOUS INFUSIONS ON APPROXIMATELY 5 TIMES^
     Route: 042
     Dates: start: 20010904

REACTIONS (1)
  - SEPSIS [None]
